FAERS Safety Report 18298013 (Version 1)
Quarter: 2020Q3

REPORT INFORMATION
  Report Type: Spontaneous
  Country: FR (occurrence: FR)
  Receive Date: 20200922
  Receipt Date: 20200922
  Transmission Date: 20201103
  Serious: Yes (Disabling, Other)
  Sender: FDA-Public Use
  Company Number: FR-PFIZER INC-2020363179

PATIENT
  Age: 95 Year
  Sex: Female
  Weight: 45 kg

DRUGS (7)
  1. LASILIX [FUROSEMIDE] [Suspect]
     Active Substance: FUROSEMIDE
     Indication: HYPERTENSION
     Dosage: 20 MILLIGRAM, QD
     Route: 048
     Dates: end: 20191024
  2. CORDARONE [Suspect]
     Active Substance: AMIODARONE HYDROCHLORIDE
     Indication: ARRHYTHMIA
     Dosage: 200 MILLIGRAM, QD
     Route: 048
     Dates: end: 20191024
  3. INIPOMP [Suspect]
     Active Substance: PANTOPRAZOLE SODIUM
     Indication: GASTROOESOPHAGEAL REFLUX DISEASE
     Dosage: 20 MILLIGRAM
     Route: 048
     Dates: end: 20191024
  4. SERESTA [Suspect]
     Active Substance: OXAZEPAM
     Indication: ANXIETY
     Dosage: UNK
     Route: 048
     Dates: end: 20191024
  5. PREVISCAN [PENTOXIFYLLINE] [Suspect]
     Active Substance: PENTOXIFYLLINE
     Dosage: UNK UNK, QD
     Route: 048
     Dates: end: 20191023
  6. IMOVANE [Suspect]
     Active Substance: ZOPICLONE
     Indication: INSOMNIA
     Dosage: UNK
     Route: 048
     Dates: end: 20191024
  7. HEMIGOXINE NATIVELLE [Suspect]
     Active Substance: DIGOXIN
     Indication: CARDIAC FAILURE
     Dosage: UNK UNK, QD
     Route: 048
     Dates: end: 20191024

REACTIONS (2)
  - Hemiplegia [Recovered/Resolved with Sequelae]
  - Cerebral haemorrhage [Recovered/Resolved with Sequelae]

NARRATIVE: CASE EVENT DATE: 20191024
